FAERS Safety Report 12838699 (Version 1)
Quarter: 2016Q4

REPORT INFORMATION
  Report Type: Spontaneous
  Country: US (occurrence: US)
  Receive Date: 20161012
  Receipt Date: 20161012
  Transmission Date: 20170207
  Serious: No
  Sender: FDA-Public Use
  Company Number: US-MISSION PHARMACAL COMPANY-1058253

PATIENT
  Age: 20 Year
  Sex: Male

DRUGS (2)
  1. BENADRYL [Concomitant]
     Active Substance: DIPHENHYDRAMINE HYDROCHLORIDE
     Route: 065
  2. THIOLA [Suspect]
     Active Substance: TIOPRONIN
     Indication: URETEROLITHIASIS
     Route: 065
     Dates: start: 20160804

REACTIONS (7)
  - Drug dose omission [Unknown]
  - Dry skin [Unknown]
  - Blister [Unknown]
  - Oral candidiasis [Unknown]
  - Rash pruritic [Unknown]
  - Drug ineffective [Unknown]
  - Vomiting [Unknown]
